FAERS Safety Report 6468816-8 (Version None)
Quarter: 2009Q4

REPORT INFORMATION
  Report Type: 
  Country: None (occurrence: None)
  Receive Date: 20091203
  Receipt Date: 20081223
  Transmission Date: 20100525
  Serious: Yes (Life-Threatening, Hospitalization)
  Sender: FDA-Public Use
  Company Number: US-ELI_LILLY_AND_COMPANY-US_0412108909

PATIENT
  Age: 17 Year
  Sex: Male

DRUGS (5)
  1. ZYPREXA [Suspect]
     Indication: PSYCHOTIC DISORDER
     Dosage: 10 MG, DAILY (1/D)
     Route: 048
  2. ZYPREXA [Interacting]
     Dosage: 2.5 MG, 2/D
  3. ZYPREXA [Interacting]
     Dosage: 5 MG, DAILY (1/D)
  4. ZYPREXA [Interacting]
     Dosage: 20 MG, UNK
  5. DIVALPROEX SODIUM [Concomitant]
     Indication: PSYCHOMOTOR HYPERACTIVITY
     Dosage: 250 MG, 3/D
     Route: 048

REACTIONS (4)
  - CATATONIA [None]
  - DRUG INTERACTION [None]
  - ELECTROENCEPHALOGRAM ABNORMAL [None]
  - NEUROLEPTIC MALIGNANT SYNDROME [None]
